FAERS Safety Report 6022168-6 (Version None)
Quarter: 2008Q4

REPORT INFORMATION
  Report Type: 
  Country: None (occurrence: None)
  Receive Date: 20081229
  Receipt Date: 20081225
  Transmission Date: 20090506
  Serious: Yes (Hospitalization)
  Sender: FDA-Public Use
  Company Number: JP-B.I. PHARMACEUTICALS,INC./RIDGEFIELD-2008-BP-18551NB

PATIENT
  Age: 8 Decade
  Sex: Male

DRUGS (1)
  1. MICARDIS [Suspect]
     Dosage: 40MG
     Route: 048

REACTIONS (3)
  - BILE DUCT STONE [None]
  - CHOLANGITIS ACUTE [None]
  - HYPOTENSION [None]
